FAERS Safety Report 6695006-6 (Version None)
Quarter: 2010Q2

REPORT INFORMATION
  Report Type: 
  Country: None (occurrence: None)
  Receive Date: 20100423
  Receipt Date: 20100412
  Transmission Date: 20101027
  Serious: Yes (Congenital Anomaly, Other)
  Sender: FDA-Public Use
  Company Number: PHHY2010FR23120

PATIENT
  Sex: Male

DRUGS (5)
  1. VOLTAREN [Suspect]
     Dosage: UNK
     Route: 064
     Dates: end: 20091130
  2. SYNTOCINON [Suspect]
     Indication: INDUCED LABOUR
  3. DAFALGAN [Suspect]
     Route: 064
  4. GELUFENE [Suspect]
     Route: 064
  5. LEVONORGESTREL AND ETHINYL ESTRADIOL [Suspect]
     Route: 064

REACTIONS (11)
  - ABDOMINAL MASS [None]
  - CALCINOSIS [None]
  - DEPRESSED LEVEL OF CONSCIOUSNESS [None]
  - DRUG EXPOSURE DURING PREGNANCY [None]
  - DUCTUS ARTERIOSUS STENOSIS FOETAL [None]
  - ENDOTRACHEAL INTUBATION [None]
  - GENERALISED OEDEMA [None]
  - HAEMANGIOMA [None]
  - HEPATOMEGALY [None]
  - HYPOTONIA [None]
  - STEAL SYNDROME [None]
